FAERS Safety Report 8358999-7 (Version None)
Quarter: 2012Q2

REPORT INFORMATION
  Report Type: 
  Country: None (occurrence: None)
  Receive Date: 20120515
  Receipt Date: 20120504
  Transmission Date: 20120825
  Serious: No
  Sender: FDA-Public Use
  Company Number: US-BIOGENIDEC-2012BI016250

PATIENT
  Sex: Female

DRUGS (1)
  1. TYSABRI [Suspect]
     Indication: MULTIPLE SCLEROSIS
     Route: 042
     Dates: start: 20111208

REACTIONS (7)
  - MOBILITY DECREASED [None]
  - LIGAMENT RUPTURE [None]
  - DEPRESSION [None]
  - NAUSEA [None]
  - FATIGUE [None]
  - STRESS [None]
  - ARTHRALGIA [None]
